FAERS Safety Report 9416158 (Version 1)
Quarter: 2013Q3

REPORT INFORMATION
  Report Type: Spontaneous
  Country: US (occurrence: US)
  Receive Date: 20130724
  Receipt Date: 20130724
  Transmission Date: 20140515
  Serious: No
  Sender: FDA-Public Use
  Company Number: US-009507513-1307USA011585

PATIENT
  Age: 68 Year
  Sex: Male

DRUGS (4)
  1. SINGULAIR [Suspect]
     Indication: HYPERSENSITIVITY
     Dosage: 10 MG, QD
     Route: 048
     Dates: start: 20130705, end: 20130715
  2. DIOVAN [Concomitant]
  3. NEXIUM [Concomitant]
  4. JANUVIA [Concomitant]

REACTIONS (1)
  - Headache [Not Recovered/Not Resolved]
